FAERS Safety Report 16283813 (Version 2)
Quarter: 2019Q4

REPORT INFORMATION
  Report Type: Spontaneous
  Country: US (occurrence: US)
  Receive Date: 20190507
  Receipt Date: 20191030
  Transmission Date: 20200122
  Serious: No
  Sender: FDA-Public Use
  Company Number: US-ACTELION-A-US2019-189166

PATIENT
  Sex: Female

DRUGS (1)
  1. OPSUMIT [Suspect]
     Active Substance: MACITENTAN
     Indication: PULMONARY ARTERIAL HYPERTENSION
     Dosage: 10 MG, QD
     Route: 048
     Dates: start: 20180719

REACTIONS (5)
  - Skin lesion [Unknown]
  - Memory impairment [Unknown]
  - Skin disorder [Unknown]
  - Skin reaction [Unknown]
  - Oxygen saturation abnormal [Unknown]
